FAERS Safety Report 4376525-4 (Version None)
Quarter: 2004Q2

REPORT INFORMATION
  Report Type: 
  Country: None (occurrence: None)
  Receive Date: 20040608
  Receipt Date: 20040602
  Transmission Date: 20050107
  Serious: Yes (Other)
  Sender: FDA-Public Use
  Company Number: 2004207081US

PATIENT
  Age: 90 Year
  Sex: Female

DRUGS (7)
  1. CYTOTEC [Suspect]
     Indication: CONSTIPATION
     Dosage: 200 UG, QID, ORAL
     Route: 048
     Dates: start: 20040208, end: 20040314
  2. VASOTEC [Concomitant]
  3. COUMADIN [Concomitant]
  4. PREVACID [Concomitant]
  5. LACTULOSE [Concomitant]
  6. DULCOLAX [Concomitant]
  7. ZOLOFT [Concomitant]

REACTIONS (2)
  - ANOREXIA [None]
  - LISTLESS [None]
